FAERS Safety Report 4756933-X (Version None)
Quarter: 2005Q3

REPORT INFORMATION
  Report Type: 
  Country: None (occurrence: None)
  Receive Date: 20050830
  Receipt Date: 20041105
  Transmission Date: 20060218
  Serious: Yes (Hospitalization, Other)
  Sender: FDA-Public Use
  Company Number: DE-MERCK-0411DEU00113

PATIENT
  Age: 80 Year
  Sex: Female

DRUGS (27)
  1. VIOXX [Suspect]
     Indication: CAUDA EQUINA SYNDROME
     Route: 048
     Dates: start: 20020527, end: 20041001
  2. VIOXX [Suspect]
     Indication: OSTEOARTHRITIS
     Route: 048
     Dates: start: 20020527, end: 20041001
  3. METOCLOPRAMIDE [Concomitant]
     Route: 065
  4. XIPAMIDE [Concomitant]
     Route: 065
  5. CLOTRIMAZOLE AND HYDROCORTISONE [Concomitant]
     Route: 061
  6. CALCIUM CITRATE AND MAGNESIUM CITRATE AND POTASSIUM CITRATE [Concomitant]
     Route: 065
  7. ASPIRIN [Concomitant]
     Route: 065
  8. CELECOXIB [Concomitant]
     Route: 048
     Dates: start: 20000703, end: 20010101
  9. CARBAMAZEPINE [Concomitant]
     Route: 065
  10. DICLOFENAC [Concomitant]
     Route: 065
  11. OMEPRAZOLE [Concomitant]
     Route: 065
  12. CIPROFLOXACIN HYDROCHLORIDE [Concomitant]
     Route: 065
  13. FLUOCINOLONE ACETONIDE AND LIDOCAINE HYDROCHLORIDE [Concomitant]
     Route: 065
  14. VALACYCLOVIR HYDROCHLORIDE [Concomitant]
     Route: 065
  15. DIPYRONE [Concomitant]
     Route: 065
  16. ACETYLCYSTEINE [Concomitant]
     Route: 065
  17. RANITIDINE HYDROCHLORIDE [Concomitant]
     Route: 065
  18. LACTULOSE [Concomitant]
     Route: 065
  19. LEVOTHYROXINE SODIUM [Concomitant]
     Route: 065
  20. HYDROCHLOROTHIAZIDE [Concomitant]
     Route: 065
  21. AMITRIPTYLINE HYDROCHLORIDE [Concomitant]
     Route: 065
  22. TETRAZEPAM [Concomitant]
     Route: 065
  23. ENALAPRIL MALEATE [Concomitant]
     Route: 065
  24. FOSAMAX [Concomitant]
     Route: 048
  25. PREDNISOLONE [Concomitant]
     Route: 065
  26. METOPROLOL TARTRATE [Concomitant]
     Route: 065
  27. SODIUM PERCHLORATE [Concomitant]
     Route: 065

REACTIONS (24)
  - BACK PAIN [None]
  - BRONCHITIS [None]
  - CAUDA EQUINA SYNDROME [None]
  - CHOLELITHIASIS [None]
  - CORONARY ARTERY DISEASE [None]
  - DERMATOPHYTOSIS [None]
  - ECZEMA [None]
  - ERYSIPELAS [None]
  - FULL BLOOD COUNT ABNORMAL [None]
  - GASTRIC ULCER [None]
  - HAEMORRHOIDS [None]
  - IDIOPATHIC URTICARIA [None]
  - MYCOSIS FUNGOIDES [None]
  - MYOCARDIAL INFARCTION [None]
  - NAUSEA [None]
  - OESOPHAGITIS [None]
  - PAIN [None]
  - PAROTITIS [None]
  - PROCTITIS [None]
  - PULMONARY EMBOLISM [None]
  - SILENT MYOCARDIAL INFARCTION [None]
  - SKIN ULCER [None]
  - SPINAL OSTEOARTHRITIS [None]
  - TENOSYNOVITIS [None]
